FAERS Safety Report 25379764 (Version 1)
Quarter: 2025Q2

REPORT INFORMATION
  Report Type: Spontaneous
  Country: US (occurrence: None)
  Receive Date: 20250530
  Receipt Date: 20250530
  Transmission Date: 20250716
  Serious: Yes (Disabling)
  Sender: FDA-CTU
  Company Number: None

PATIENT
  Age: 36 Year
  Sex: Female
  Weight: 62.1 kg

DRUGS (2)
  1. LEXAPRO [Suspect]
     Active Substance: ESCITALOPRAM OXALATE
     Dates: start: 20200201
  2. LEXAPRO [Concomitant]
     Active Substance: ESCITALOPRAM OXALATE

REACTIONS (14)
  - Drug withdrawal syndrome [None]
  - Panic attack [None]
  - Insomnia [None]
  - Dizziness [None]
  - Brain fog [None]
  - Weight decreased [None]
  - Headache [None]
  - Nausea [None]
  - Vomiting [None]
  - Fear [None]
  - Flat affect [None]
  - Malaise [None]
  - Anxiety [None]
  - Depression [None]

NARRATIVE: CASE EVENT DATE: 20240408
